FAERS Safety Report 12530870 (Version 3)
Quarter: 2017Q1

REPORT INFORMATION
  Report Type: Report from Study
  Country: BR (occurrence: BR)
  Receive Date: 20160706
  Receipt Date: 20170217
  Transmission Date: 20170428
  Serious: Yes (Death, Other)
  Sender: FDA-Public Use
  Company Number: BR-BRISTOL-MYERS SQUIBB COMPANY-BMS-2016-053999

PATIENT
  Sex: Female

DRUGS (1)
  1. ABATACEPT [Suspect]
     Active Substance: ABATACEPT
     Indication: RHEUMATOID ARTHRITIS
     Dosage: 750 MG, QMO
     Route: 042

REACTIONS (5)
  - Death [Fatal]
  - Uterine cancer [Unknown]
  - Anaemia [Unknown]
  - Cervix carcinoma [Not Recovered/Not Resolved]
  - Vaginal haemorrhage [Unknown]
